FAERS Safety Report 7507567-5 (Version None)
Quarter: 2011Q2

REPORT INFORMATION
  Report Type: 
  Country: None (occurrence: None)
  Receive Date: 20110526
  Receipt Date: 20110523
  Transmission Date: 20111010
  Serious: Yes (Hospitalization, Other)
  Sender: FDA-Public Use
  Company Number: US-RB-013023-10

PATIENT
  Sex: Female

DRUGS (4)
  1. ACETAMINOPHEN [Concomitant]
     Indication: PAIN
     Dosage: TAKEN AS NEEDED - DOSING UNKNOWN
     Route: 065
  2. SUBUTEX [Suspect]
     Indication: DRUG DEPENDENCE
     Route: 060
     Dates: start: 20100709
  3. SUBOXONE [Suspect]
     Indication: DRUG DEPENDENCE
     Route: 060
     Dates: end: 20100708
  4. PRENATAL VITAMINS [Concomitant]
     Indication: PREGNANCY
     Dosage: DOSING INFORMATION IS UNKNOWN - TOOK ENTIRE PREGNANCY
     Route: 065
     Dates: start: 20100101, end: 20110202

REACTIONS (3)
  - DRUG EXPOSURE DURING PREGNANCY [None]
  - CHOLELITHIASIS [None]
  - KIDNEY INFECTION [None]
